FAERS Safety Report 7003671-9 (Version None)
Quarter: 2010Q3

REPORT INFORMATION
  Report Type: 
  Country: None (occurrence: None)
  Receive Date: 20100920
  Receipt Date: 20090731
  Transmission Date: 20110219
  Serious: No
  Sender: FDA-Public Use
  Company Number: US-WYE-H10419309

PATIENT
  Sex: Female

DRUGS (4)
  1. PROTONIX [Suspect]
     Indication: GASTROOESOPHAGEAL REFLUX DISEASE
     Route: 048
     Dates: start: 20050101, end: 20090730
  2. METHOTREXATE [Concomitant]
  3. RAMIPRIL [Concomitant]
  4. ENBREL [Concomitant]

REACTIONS (6)
  - BLISTER [None]
  - DRY SKIN [None]
  - ERYTHEMA [None]
  - HYPOTHYROIDISM [None]
  - PRURITUS [None]
  - SKIN EXFOLIATION [None]
